FAERS Safety Report 9852803 (Version 3)
Quarter: 2014Q2

REPORT INFORMATION
  Report Type: Report from Study
  Country: CA (occurrence: CA)
  Receive Date: 20140129
  Receipt Date: 20140529
  Transmission Date: 20141212
  Serious: Yes (Other)
  Sender: FDA-Public Use
  Company Number: CA-ALEXION PHARMACEUTICALS INC.-A201400228

PATIENT
  Sex: 0

DRUGS (11)
  1. SOLIRIS [Suspect]
     Indication: PAROXYSMAL NOCTURNAL HAEMOGLOBINURIA
     Dosage: 600 MG, QW
     Route: 042
     Dates: start: 20130329, end: 20130419
  2. SOLIRIS [Suspect]
     Dosage: 900 MG, Q2W
     Route: 042
     Dates: start: 20130426, end: 20140117
  3. SOLIRIS [Suspect]
     Dosage: 900 MG, Q2W
     Dates: start: 20130426
  4. HALOPERIDOL [Concomitant]
     Indication: SCHIZOAFFECTIVE DISORDER
     Dosage: 5 MG, HS
     Route: 048
     Dates: start: 1978
  5. PAXIL [Concomitant]
     Indication: ANXIETY
     Dosage: 10 MG, QHS
     Route: 048
     Dates: start: 1995
  6. LORAZEPAM [Concomitant]
     Indication: INSOMNIA
     Dosage: UNK, QHS, PRN
     Route: 048
     Dates: start: 2002
  7. TYLENOL [Concomitant]
     Indication: HEADACHE
     Dosage: 325 MG, TWO TABS, BID, PRN
     Route: 048
     Dates: start: 20120329
  8. ADVIL [Concomitant]
     Indication: PAIN
     Dosage: UNK, PRN
     Route: 048
  9. ADVIL [Concomitant]
     Indication: PYREXIA
  10. ACETAMINOPHEN W/CODEINE [Concomitant]
     Indication: ARTHRITIS
     Dosage: UNK, PRN
     Route: 048
     Dates: start: 2012
  11. FUCIDIN H [Concomitant]
     Indication: LIP PAIN
     Dosage: UNK, QID
     Route: 061

REACTIONS (9)
  - Platelet count decreased [Not Recovered/Not Resolved]
  - Chest pain [Not Recovered/Not Resolved]
  - Hepatic mass [Not Recovered/Not Resolved]
  - Platelet count decreased [Recovered/Resolved]
  - Anxiety [Not Recovered/Not Resolved]
  - Lip blister [Not Recovered/Not Resolved]
  - Fatigue [Not Recovered/Not Resolved]
  - Solar lentigo [Unknown]
  - Lip haemorrhage [Not Recovered/Not Resolved]
